FAERS Safety Report 8811629 (Version 1)
Quarter: 2012Q4

REPORT INFORMATION
  Report Type: 
  Country: GB (occurrence: GB)
  Receive Date: 20120927
  Receipt Date: 20120927
  Transmission Date: 20130627
  Serious: Yes (Life-Threatening, Hospitalization, Other)
  Sender: FDA-Public Use
  Company Number: GB-ASTRAZENECA-2012SE74053

PATIENT
  Age: 62 Year
  Sex: Male

DRUGS (3)
  1. BRILIQUE [Suspect]
     Indication: ACUTE MYOCARDIAL INFARCTION
     Route: 048
     Dates: start: 20120823
  2. BRILIQUE [Suspect]
     Indication: ACUTE MYOCARDIAL INFARCTION
     Route: 048
     Dates: start: 20120824
  3. ASPIRIN [Suspect]
     Indication: ANTIPLATELET THERAPY
     Route: 048
     Dates: start: 20120823

REACTIONS (3)
  - Gastric haemorrhage [Unknown]
  - Haematemesis [Recovered/Resolved with Sequelae]
  - Melaena [Recovered/Resolved with Sequelae]
